FAERS Safety Report 16733638 (Version 1)
Quarter: 2019Q3

REPORT INFORMATION
  Report Type: Report from Study
  Country: US (occurrence: US)
  Receive Date: 20190823
  Receipt Date: 20190823
  Transmission Date: 20191005
  Serious: No
  Sender: FDA-Public Use
  Company Number: PHEH2019US033686

PATIENT
  Sex: Female

DRUGS (1)
  1. DUREZOL [Suspect]
     Active Substance: DIFLUPREDNATE
     Indication: PROPHYLAXIS
     Route: 047

REACTIONS (3)
  - Eye swelling [Unknown]
  - Ocular procedural complication [Unknown]
  - Visual impairment [Unknown]
